FAERS Safety Report 13737919 (Version 2)
Quarter: 2018Q2

REPORT INFORMATION
  Report Type: Spontaneous
  Country: US (occurrence: US)
  Receive Date: 20170710
  Receipt Date: 20180627
  Transmission Date: 20180711
  Serious: No
  Sender: FDA-Public Use
  Company Number: US-SAOL THERAPEUTICS-2016SAO00961

PATIENT
  Sex: Male

DRUGS (1)
  1. BACLOFEN. [Suspect]
     Active Substance: BACLOFEN
     Indication: MUSCLE SPASTICITY

REACTIONS (5)
  - Somnolence [Unknown]
  - Drug dose omission [Unknown]
  - Nervousness [Unknown]
  - Device alarm issue [Unknown]
  - Dizziness [Unknown]

NARRATIVE: CASE EVENT DATE: 201610
